FAERS Safety Report 11860024 (Version 2)
Quarter: 2016Q1

REPORT INFORMATION
  Report Type: Spontaneous
  Country: JP (occurrence: JP)
  Receive Date: 20151222
  Receipt Date: 20160314
  Transmission Date: 20160526
  Serious: Yes (Death)
  Sender: FDA-Public Use
  Company Number: JP-TEVA-618235ISR

PATIENT
  Age: 54 Year
  Sex: Female
  Weight: 36 kg

DRUGS (9)
  1. E-FEN BUCCAL [Suspect]
     Active Substance: FENTANYL CITRATE
     Indication: BREAKTHROUGH PAIN
     Dosage: 100 MICROGRAM DAILY;
     Route: 002
     Dates: start: 20150818, end: 20150818
  2. LOXOPROFEN [Concomitant]
     Active Substance: LOXOPROFEN
     Indication: CANCER PAIN
     Route: 048
     Dates: start: 20150814
  3. FULCALIQ [Concomitant]
     Active Substance: AMINO ACIDS\CARBOHYDRATES\ELECTROLYTES NOS\VITAMINS
     Indication: GASTRIC CANCER
     Dosage: 2 DOSAGE FORMS DAILY;
     Route: 041
  4. INTRALIPOS [Concomitant]
     Active Substance: SOYBEAN OIL
     Indication: GASTRIC CANCER
     Dosage: 100 ML DAILY;
     Route: 041
  5. 10% SODIUM CHLORIDE [Concomitant]
     Active Substance: SODIUM CHLORIDE
     Indication: GASTRIC CANCER
     Dosage: 2 GRAM DAILY;
     Route: 042
  6. AMLODIPINE [Concomitant]
     Active Substance: AMLODIPINE BESYLATE
     Indication: HYPERTENSION
     Dosage: 5 MILLIGRAM DAILY;
     Route: 048
     Dates: start: 20150814
  7. FENTOS [Concomitant]
     Active Substance: FENTANYL
     Indication: CANCER PAIN
     Dosage: 3 MILLIGRAM DAILY;
     Route: 062
     Dates: start: 20150817
  8. MINERIC-5 [Concomitant]
     Indication: GASTRIC CANCER
     Dosage: 2 ML DAILY;
     Route: 041
  9. AZILVA [Concomitant]
     Active Substance: AZILSARTAN KAMEDOXOMIL
     Indication: HYPERTENSION
     Dosage: 20 MILLIGRAM DAILY;
     Route: 048
     Dates: start: 20150815

REACTIONS (2)
  - Drug ineffective [Unknown]
  - Gastric cancer [Fatal]

NARRATIVE: CASE EVENT DATE: 20150902
